FAERS Safety Report 8933008 (Version 4)
Quarter: 2013Q1

REPORT INFORMATION
  Report Type: Spontaneous
  Country: AU (occurrence: AU)
  Receive Date: 20121129
  Receipt Date: 20130215
  Transmission Date: 20140127
  Serious: Yes (Life-Threatening, Hospitalization, Other)
  Sender: FDA-Public Use
  Company Number: AU-009507513-1211AUS010650

PATIENT
  Age: 54 Year
  Sex: Female
  Weight: 55 kg

DRUGS (7)
  1. VICTRELIS 200 MG [Suspect]
     Dosage: 2400 MG QD
     Route: 048
     Dates: start: 20120913, end: 20121125
  2. INTERFERON ALFA-2B [Suspect]
     Indication: HEPATIC CIRRHOSIS
     Dosage: 180 MICROGRAM, QW
     Route: 058
     Dates: start: 20120821, end: 20121120
  3. RIBAVIRIN [Suspect]
     Indication: HEPATIC CIRRHOSIS
     Dosage: 600 MG, QD
     Route: 048
     Dates: start: 20120821
  4. RIBAVIRIN [Suspect]
     Dosage: 800 MG, QD
     Route: 048
     Dates: start: 20121029, end: 20121121
  5. RIBAVIRIN [Suspect]
     Dosage: 600 MG, QD
     Route: 048
     Dates: start: 20121122, end: 20121125
  6. FISH OIL [Concomitant]
     Dosage: UNK
     Dates: end: 20121125
  7. CENTRUM [Concomitant]
     Dosage: UNK
     Dates: end: 20121125

REACTIONS (8)
  - Anaemia [Recovered/Resolved]
  - Neutropenia [Recovered/Resolved]
  - Sepsis [Recovered/Resolved]
  - Fatigue [Unknown]
  - Dizziness [Unknown]
  - Dyspnoea [Unknown]
  - Pallor [Unknown]
  - Headache [Unknown]
